FAERS Safety Report 7302016-4 (Version None)
Quarter: 2011Q1

REPORT INFORMATION
  Report Type: 
  Country: None (occurrence: None)
  Receive Date: 20110218
  Receipt Date: 20110215
  Transmission Date: 20110831
  Serious: Yes (Hospitalization)
  Sender: FDA-Public Use
  Company Number: FR-CELGENEUS-056-C5013-11021892

PATIENT
  Sex: Male

DRUGS (17)
  1. CARBOCISTEINE [Concomitant]
     Indication: BRONCHITIS
     Route: 048
     Dates: start: 20100118, end: 20100124
  2. DACRYOSERUM [Concomitant]
     Indication: BRONCHITIS
     Dates: start: 20100515, end: 20100630
  3. IMPROMEN [Concomitant]
     Route: 048
     Dates: start: 20100501
  4. CLASTOBAN [Concomitant]
     Indication: PROPHYLAXIS
     Route: 048
     Dates: start: 20090310
  5. TOBREX [Concomitant]
     Indication: CONJUNCTIVITIS
     Route: 047
     Dates: start: 20100516, end: 20100630
  6. DAFALGAN [Concomitant]
     Indication: BACK PAIN
     Route: 048
     Dates: start: 20090731
  7. AUGMENTIN '125' [Concomitant]
     Indication: BRONCHITIS
     Route: 048
     Dates: start: 20110118, end: 20110124
  8. TOBREX [Concomitant]
     Route: 047
     Dates: start: 20100118, end: 20100124
  9. VISKEN [Concomitant]
     Route: 048
     Dates: start: 19990101
  10. DIFFU K [Concomitant]
     Route: 048
     Dates: start: 20090924
  11. DIFFU K [Concomitant]
     Indication: PROPHYLAXIS
  12. DEXAMETHASONE [Suspect]
     Indication: MULTIPLE MYELOMA
     Route: 065
     Dates: start: 20090311
  13. MAALOX [Concomitant]
     Route: 048
     Dates: start: 20100506
  14. RHINOTROPHYL [Concomitant]
     Indication: GASTRIC ULCER
     Route: 045
     Dates: start: 20110118, end: 20110124
  15. CC-5013 [Suspect]
     Indication: MULTIPLE MYELOMA
     Route: 048
     Dates: start: 20090311
  16. NEXIUM [Concomitant]
     Indication: GASTRIC ULCER
     Route: 048
     Dates: start: 20000101
  17. DACRYOSERUM [Concomitant]
     Dates: start: 20100118, end: 20100124

REACTIONS (1)
  - PANCREATIC CARCINOMA [None]
